FAERS Safety Report 8945253 (Version 2)
Quarter: 2012Q4

REPORT INFORMATION
  Report Type: Report from Study
  Country: LB (occurrence: LB)
  Receive Date: 20121205
  Receipt Date: 20121228
  Transmission Date: 20130627
  Serious: Yes (Hospitalization, Other)
  Sender: FDA-Public Use
  Company Number: LB-SANOFI-AVENTIS-2012SA088489

PATIENT
  Age: 60 Year
  Weight: 90 kg

DRUGS (2)
  1. INSULIN GLARGINE [Suspect]
     Indication: TYPE II DIABETES MELLITUS
     Dates: start: 20120502
  2. OMEPRAZOLE [Concomitant]
     Indication: DRUG USE FOR UNKNOWN INDICATION
     Route: 065

REACTIONS (1)
  - Endoscopy upper gastrointestinal tract [Recovered/Resolved]
